FAERS Safety Report 9399810 (Version 1)
Quarter: 2013Q3

REPORT INFORMATION
  Report Type: Report from Study
  Country: US (occurrence: US)
  Receive Date: 20130715
  Receipt Date: 20130715
  Transmission Date: 20140515
  Serious: Yes (Other)
  Sender: FDA-Public Use
  Company Number: PHHY2013US073630

PATIENT
  Sex: Female
  Weight: 57.15 kg

DRUGS (12)
  1. GILENYA [Suspect]
     Indication: MULTIPLE SCLEROSIS
     Dosage: 0.5 MG, QD
     Route: 048
     Dates: start: 20110822, end: 201201
  2. ALPRAZOLAM [Concomitant]
     Dosage: 0.25 MG, BID (ONE AT EVERY 12 HOURS)
     Route: 048
     Dates: start: 20130213
  3. CLONAZEPAM [Concomitant]
     Dosage: 1 DF, TID
     Route: 048
     Dates: start: 20121231
  4. ONDANSETRON HCL [Concomitant]
     Dosage: 1 DF, BID
     Route: 048
     Dates: start: 20130121
  5. PEPCID [Concomitant]
     Dosage: 1 DF, BID
     Route: 048
     Dates: start: 20130121
  6. PREDNISONE [Concomitant]
     Dosage: 1 DF, UNK (3XDAY AFTER IVMP, 2 TABS SECOND DAY, 1 X3DAYS)
     Route: 048
     Dates: start: 20130213
  7. PRILOSEC [Concomitant]
     Dosage: 1 DF, DAILY
     Route: 048
     Dates: start: 20120723
  8. VENLAFAXINE HCL [Concomitant]
     Dosage: 2 DF, UNK
     Route: 048
     Dates: start: 20121120
  9. VITAMIN B12 [Concomitant]
     Dosage: 1 DF, UNK
     Route: 048
     Dates: start: 20121002
  10. VIT D [Concomitant]
     Route: 048
  11. ZOFRAN [Concomitant]
     Dosage: 1 DF, BID
     Route: 048
     Dates: start: 20130121
  12. RHOGAM [Concomitant]
     Dates: start: 20120808

REACTIONS (27)
  - Spinal osteoarthritis [Unknown]
  - Cervical myelopathy [Unknown]
  - Neck pain [Not Recovered/Not Resolved]
  - Myalgia [Unknown]
  - Arthralgia [Unknown]
  - Intervertebral disc protrusion [Unknown]
  - Multiple sclerosis relapse [Unknown]
  - Central nervous system lesion [Unknown]
  - Memory impairment [Unknown]
  - Muscle spasms [Unknown]
  - Muscular weakness [Unknown]
  - Hypoaesthesia [Unknown]
  - Cognitive disorder [Unknown]
  - Depression [Unknown]
  - Fatigue [Unknown]
  - Anxiety [Unknown]
  - Panic attack [Unknown]
  - Tearfulness [Unknown]
  - Pollakiuria [Unknown]
  - Constipation [Unknown]
  - Optic neuritis [Unknown]
  - Blindness [Unknown]
  - Eye pain [Unknown]
  - Eyelid ptosis [Unknown]
  - Optic atrophy [Unknown]
  - Vision blurred [Unknown]
  - Insomnia [Unknown]
